FAERS Safety Report 7248358-2 (Version None)
Quarter: 2011Q1

REPORT INFORMATION
  Report Type: 
  Country: None (occurrence: None)
  Receive Date: 20110127
  Receipt Date: 20110113
  Transmission Date: 20110831
  Serious: Yes (Other)
  Sender: FDA-Public Use
  Company Number: US-BAYER-2011-004774

PATIENT
  Sex: Female
  Weight: 47.619 kg

DRUGS (2)
  1. MULTIVITAMIN [Concomitant]
     Dosage: UNK UNK, PRN
  2. ALEVE (CAPLET) [Suspect]
     Indication: PAIN
     Dosage: DAILY DOSE 440 MG
     Route: 048
     Dates: start: 20110112

REACTIONS (1)
  - BLOOD URINE PRESENT [None]
